FAERS Safety Report 4485909-5 (Version None)
Quarter: 2004Q4

REPORT INFORMATION
  Report Type: 
  Country: None (occurrence: None)
  Receive Date: 20041020
  Receipt Date: 20041008
  Transmission Date: 20050328
  Serious: Yes (Other)
  Sender: FDA-Public Use
  Company Number: 2004-03289

PATIENT
  Age: 74 Year
  Sex: Male

DRUGS (3)
  1. IMMUCYST (BCG-IT (CONNAUGHT)) AVENTIS PASTEUR LTD [Suspect]
     Indication: BLADDER CANCER
     Dosage: 6 INSTILLATIONS (81.0 MG) B.IN., BLADDER
     Dates: start: 20040706, end: 20040810
  2. TEGAFUR [Concomitant]
  3. ANTIBIOTIC [Concomitant]

REACTIONS (1)
  - URINARY RETENTION [None]
